FAERS Safety Report 9756449 (Version 1)
Quarter: 2013Q4

REPORT INFORMATION
  Report Type: Spontaneous
  Country: US (occurrence: US)
  Receive Date: 20131213
  Receipt Date: 20131213
  Transmission Date: 20140711
  Serious: No
  Sender: FDA-Public Use
  Company Number: US-GLAXOSMITHKLINE-A1041484A

PATIENT
  Age: 74 Year
  Sex: Female

DRUGS (2)
  1. NICODERM CQ CLEAR 14MG [Suspect]
     Indication: EX-TOBACCO USER
     Route: 062
     Dates: start: 20130904
  2. MUSCLE RELAXANT [Concomitant]

REACTIONS (5)
  - Nervousness [Not Recovered/Not Resolved]
  - Feeling jittery [Not Recovered/Not Resolved]
  - Tremor [Not Recovered/Not Resolved]
  - Fatigue [Recovered/Resolved]
  - Application site erythema [Recovering/Resolving]
